FAERS Safety Report 6407733-6 (Version None)
Quarter: 2009Q4

REPORT INFORMATION
  Report Type: 
  Country: None (occurrence: None)
  Receive Date: 20091020
  Receipt Date: 20091013
  Transmission Date: 20100525
  Serious: Yes (Death, Other)
  Sender: FDA-Public Use
  Company Number: GB-AVENTIS-200920765GDDC

PATIENT
  Age: 74 Year
  Sex: Male
  Weight: 90 kg

DRUGS (4)
  1. TAXOTERE [Suspect]
     Dosage: DOSE: 60 MG/M**2 (120MG)
     Route: 042
     Dates: start: 20090501, end: 20090501
  2. ZOLADEX [Concomitant]
     Dosage: DOSE QUANTITY: 3.75
     Route: 058
  3. SERETIDE [Concomitant]
     Indication: CHRONIC OBSTRUCTIVE PULMONARY DISEASE
     Dosage: DOSE: UNK
     Route: 055
  4. SPIRIVA [Concomitant]
     Indication: CHRONIC OBSTRUCTIVE PULMONARY DISEASE
     Dosage: DOSE: UNK
     Route: 055

REACTIONS (8)
  - ARTHRALGIA [None]
  - ATRIAL FIBRILLATION [None]
  - CIRCULATORY COLLAPSE [None]
  - DEHYDRATION [None]
  - MYALGIA [None]
  - MYOCARDIAL INFARCTION [None]
  - RENAL FAILURE [None]
  - RHABDOMYOLYSIS [None]
